FAERS Safety Report 7875864-X (Version None)
Quarter: 2011Q4

REPORT INFORMATION
  Report Type: 
  Country: None (occurrence: None)
  Receive Date: 20111031
  Receipt Date: 20111018
  Transmission Date: 20120403
  Serious: Yes (Hospitalization, Other)
  Sender: FDA-Public Use
  Company Number: ZA-NOVOPROD-336954

PATIENT

DRUGS (2)
  1. NOVORAPID FLEXPEN [Suspect]
     Indication: GESTATIONAL DIABETES
     Dosage: 22 U (8+4+10),QD AT BEDTIME
     Route: 058
     Dates: start: 20110826
  2. LEVEMIR [Suspect]
     Indication: GESTATIONAL DIABETES
     Dosage: 4 U, QD AT BEDTIME
     Route: 058
     Dates: start: 20110826

REACTIONS (4)
  - BLOOD PRESSURE INCREASED [None]
  - PREMATURE LABOUR [None]
  - BLOOD GLUCOSE ABNORMAL [None]
  - MATERNAL EXPOSURE DURING PREGNANCY [None]
